FAERS Safety Report 20657187 (Version 2)
Quarter: 2024Q1

REPORT INFORMATION
  Report Type: Report from Study
  Country: JP (occurrence: JP)
  Receive Date: 20220331
  Receipt Date: 20240117
  Transmission Date: 20240409
  Serious: Yes (Other)
  Sender: FDA-Public Use
  Company Number: JP-CELLTRION INC.-2021JP007680

PATIENT

DRUGS (12)
  1. INFLIXIMAB-DYYB [Suspect]
     Active Substance: INFLIXIMAB-DYYB
     Indication: Crohn^s disease
     Dosage: 870 MG (PATIENT WEIGHT: 87.2 KG)
     Route: 041
     Dates: start: 20181118, end: 20181118
  2. INFLIXIMAB-DYYB [Suspect]
     Active Substance: INFLIXIMAB-DYYB
     Dosage: 880 MG (PATIENT WEIGHT: 87.7 KG)
     Route: 041
     Dates: start: 20190120, end: 20190120
  3. INFLIXIMAB-DYYB [Suspect]
     Active Substance: INFLIXIMAB-DYYB
     Dosage: 880 MG (PATIENT WEIGHT: 88 KG)
     Route: 041
     Dates: start: 20190317, end: 20190317
  4. INFLIXIMAB-DYYB [Suspect]
     Active Substance: INFLIXIMAB-DYYB
     Dosage: 870 MG (PATIENT WEIGHT: 87 KG)
     Route: 041
     Dates: start: 20190522, end: 20190522
  5. INFLIXIMAB-DYYB [Suspect]
     Active Substance: INFLIXIMAB-DYYB
     Dosage: 860 MG (PATIENT WEIGHT: 87.8 KG)
     Route: 041
     Dates: start: 20191109, end: 20191109
  6. INFLIXIMAB-DYYB [Suspect]
     Active Substance: INFLIXIMAB-DYYB
     Dosage: 880 MG (PATIENT WEIGHT: 87.1 KG)
     Route: 041
     Dates: start: 20201108, end: 20201108
  7. INFLIXIMAB-DYYB [Suspect]
     Active Substance: INFLIXIMAB-DYYB
     Dosage: 890 MG (PATIENT WEIGHT: 89.2 KG)
     Route: 041
     Dates: start: 20211114, end: 20211114
  8. INFLIXIMAB-DYYB [Suspect]
     Active Substance: INFLIXIMAB-DYYB
     Dosage: 900 MG (PATIENT WEIGHT: 90 KG)
     Route: 041
     Dates: start: 20221113, end: 20221113
  9. INFLIXIMAB-DYYB [Suspect]
     Active Substance: INFLIXIMAB-DYYB
     Dosage: 880 MG (PATIENT WEIGHT: 88 KG)
     Route: 041
     Dates: start: 20231111, end: 20231111
  10. MESALAMINE [Concomitant]
     Active Substance: MESALAMINE
     Dosage: 3000 MILLIGRAM/DAY ORAL
     Route: 048
  11. AZATHIOPRINE [Concomitant]
     Active Substance: AZATHIOPRINE
     Indication: Crohn^s disease
     Route: 048
  12. AZATHIOPRINE [Concomitant]
     Active Substance: AZATHIOPRINE
     Dosage: 25 MILLIGRAM/DAY
     Route: 048
     Dates: start: 20231022

REACTIONS (6)
  - Large intestine polyp [Recovered/Resolved]
  - COVID-19 [Unknown]
  - Nasopharyngitis [Recovered/Resolved]
  - Overdose [Unknown]
  - Intentional product use issue [Unknown]
  - Product use issue [Unknown]

NARRATIVE: CASE EVENT DATE: 20200701
